FAERS Safety Report 5356077-2 (Version None)
Quarter: 2007Q2

REPORT INFORMATION
  Report Type: 
  Country: None (occurrence: None)
  Receive Date: 20070613
  Receipt Date: 20070607
  Transmission Date: 20071010
  Serious: Yes (Death, Other)
  Sender: FDA-Public Use
  Company Number: DE-SHR-DE-2007-020576

PATIENT
  Sex: Male
  Weight: 107 kg

DRUGS (11)
  1. CAMPATH [Suspect]
     Dosage: 3 MG, 1 DOSE
     Route: 058
     Dates: start: 20040630, end: 20040630
  2. CAMPATH [Suspect]
     Dosage: 10 MG, 1 DOSE
     Route: 058
     Dates: start: 20040701, end: 20040701
  3. CAMPATH [Suspect]
     Dosage: 30 MG, 1 DOSE
     Route: 058
     Dates: start: 20040702, end: 20040702
  4. CAMPATH [Suspect]
     Dosage: 30 MG, 1 DOSE
     Route: 058
     Dates: start: 20040705, end: 20040705
  5. RAMIPRIL [Concomitant]
  6. METOPROLOL SUCCINATE [Concomitant]
  7. ACETAMINOPHEN [Concomitant]
  8. VALTREX [Concomitant]
  9. TAVEGIL [Concomitant]
  10. ZANTIC [Concomitant]
  11. PREDNISOLONE [Concomitant]

REACTIONS (2)
  - DISTURBANCE IN ATTENTION [None]
  - TUMOUR LYSIS SYNDROME [None]
